FAERS Safety Report 15853928 (Version 1)
Quarter: 2019Q1

REPORT INFORMATION
  Report Type: Spontaneous
  Country: US (occurrence: US)
  Receive Date: 20190122
  Receipt Date: 20190122
  Transmission Date: 20190417
  Serious: No
  Sender: FDA-Public Use
  Company Number: US-PFIZER INC-2019021461

PATIENT
  Age: 48 Year
  Sex: Female
  Weight: 61.23 kg

DRUGS (2)
  1. SYNTHROID [Concomitant]
     Active Substance: LEVOTHYROXINE SODIUM
     Indication: HYPOTHYROIDISM
     Dosage: 100 UG, DAILY
  2. NEURONTIN [Suspect]
     Active Substance: GABAPENTIN
     Indication: COMPLEX REGIONAL PAIN SYNDROME
     Dosage: 1500 MG, DAILY (300MG BY MOUTH FIVE TIMES A DAY)
     Route: 048
     Dates: start: 201201

REACTIONS (4)
  - Paraesthesia [Recovered/Resolved]
  - Drug ineffective for unapproved indication [Unknown]
  - Tremor [Recovered/Resolved with Sequelae]
  - Off label use [Unknown]

NARRATIVE: CASE EVENT DATE: 201201
